FAERS Safety Report 9323878 (Version 1)
Quarter: 2013Q2

REPORT INFORMATION
  Report Type: Spontaneous
  Country: US (occurrence: None)
  Receive Date: 20130529
  Receipt Date: 20130529
  Transmission Date: 20140414
  Serious: Yes (Hospitalization)
  Sender: FDA-Public Use
  Company Number: 2013-0003

PATIENT
  Sex: 0

DRUGS (1)
  1. FLUOXETINE [Suspect]

REACTIONS (2)
  - Clostridium difficile infection [None]
  - Diarrhoea [None]
